FAERS Safety Report 8961382 (Version 1)
Quarter: 2012Q4

REPORT INFORMATION
  Report Type: 
  Country: US (occurrence: US)
  Receive Date: 20121213
  Receipt Date: 20121213
  Transmission Date: 20130627
  Serious: No
  Sender: FDA-Public Use
  Company Number: US-ALLERGAN-1208826US

PATIENT
  Age: 40 Year
  Sex: Female

DRUGS (2)
  1. ACZONE [Suspect]
     Indication: ACNE
     Dosage: thin smear to affected area, qod
     Route: 061
     Dates: start: 20120604, end: 20120611
  2. ACZONE [Suspect]
     Dosage: thin smear to affected area, qod
     Route: 061
     Dates: start: 20120611

REACTIONS (1)
  - Acne [Unknown]
